FAERS Safety Report 9092742 (Version 1)
Quarter: 2013Q1

REPORT INFORMATION
  Report Type: Spontaneous
  Country: US (occurrence: US)
  Receive Date: 20130201
  Receipt Date: 20130201
  Transmission Date: 20140127
  Serious: Yes (Hospitalization)
  Sender: FDA-Public Use
  Company Number: US-BAYER-2013-012324

PATIENT
  Age: 20 Year
  Sex: Female
  Weight: 100 kg

DRUGS (7)
  1. YAZ [Suspect]
  2. AMOXICILLIN [Concomitant]
     Dosage: 500 MG, UNK
  3. MUSCLE RELAXANT [Concomitant]
  4. ATIVAN [Concomitant]
  5. ROCEPHIN [Concomitant]
  6. LORTAB [Concomitant]
  7. ZITHROMAX [Concomitant]

REACTIONS (1)
  - Pulmonary embolism [None]
